FAERS Safety Report 8530332 (Version 4)
Quarter: 2013Q3

REPORT INFORMATION
  Report Type: Report from Study
  Country: MX (occurrence: MX)
  Receive Date: 20120425
  Receipt Date: 20130806
  Transmission Date: 20140515
  Serious: Yes (Death, Hospitalization)
  Sender: FDA-Public Use
  Company Number: PHHY2012MX034094

PATIENT
  Age: 65 Year
  Sex: Female

DRUGS (4)
  1. GALVUS MET [Suspect]
     Indication: DIABETES MELLITUS
     Dosage: 2 DF, DAILY
     Dates: start: 201202
  2. EXFORGE [Suspect]
     Indication: HYPERTENSION
     Dosage: 1 DF(160 MG VALS/5 MG AMLO), DAILY
     Route: 048
     Dates: start: 201203, end: 201204
  3. EXFORGE [Suspect]
     Dosage: 2 TABLETS (160/10 MG) DAILY
     Route: 048
     Dates: start: 201204
  4. PANCLASA [Concomitant]
     Dosage: UNK

REACTIONS (5)
  - Blood glucose decreased [Fatal]
  - Cholelithiasis [Not Recovered/Not Resolved]
  - Gallbladder pain [Not Recovered/Not Resolved]
  - Blood pressure fluctuation [Not Recovered/Not Resolved]
  - Blood glucose fluctuation [Not Recovered/Not Resolved]
